FAERS Safety Report 5786182-8 (Version None)
Quarter: 2008Q2

REPORT INFORMATION
  Report Type: 
  Country: None (occurrence: None)
  Receive Date: 20080624
  Receipt Date: 20080618
  Transmission Date: 20081010
  Serious: Yes (Life-Threatening, Hospitalization, Other)
  Sender: FDA-Public Use
  Company Number: B0463723A

PATIENT
  Age: 44 Year
  Sex: Female
  Weight: 55 kg

DRUGS (3)
  1. LAPATINIB [Suspect]
     Dosage: 1250MG PER DAY
     Route: 048
     Dates: start: 20070206, end: 20070406
  2. XELODA [Suspect]
     Dosage: 2000MG PER DAY
     Route: 048
     Dates: start: 20070208, end: 20070326
  3. NEURONTIN [Concomitant]
     Dosage: 200MG VARIABLE DOSE
     Route: 065
     Dates: start: 20060713

REACTIONS (5)
  - ALTERED STATE OF CONSCIOUSNESS [None]
  - CHOLESTASIS [None]
  - CONVULSION [None]
  - DRUG INTERACTION [None]
  - HEPATOCELLULAR INJURY [None]
